FAERS Safety Report 22339864 (Version 1)
Quarter: 2023Q2

REPORT INFORMATION
  Report Type: Spontaneous
  Country: JP (occurrence: JP)
  Receive Date: 20230518
  Receipt Date: 20230518
  Transmission Date: 20230722
  Serious: Yes (Death, Hospitalization)
  Sender: FDA-Public Use
  Company Number: JP-HORIZON THERAPEUTICS-HZN-2022-003541

PATIENT

DRUGS (15)
  1. BUPHENYL [Suspect]
     Active Substance: SODIUM PHENYLBUTYRATE
     Indication: Arginase deficiency
     Dosage: 1.6 G, TID (EVERY 8 HOURS)
     Route: 048
     Dates: start: 20170814, end: 20170914
  2. BUPHENYL [Suspect]
     Active Substance: SODIUM PHENYLBUTYRATE
     Dosage: 2 G, TID (EVERY 8 HOURS)
     Route: 048
     Dates: start: 20170915, end: 202109
  3. MYSTAN [Concomitant]
     Active Substance: CLOBAZAM
     Indication: Epilepsy
     Dosage: 10 MG, QD
     Route: 050
  4. LEVOCARNITINE [Concomitant]
     Active Substance: LEVOCARNITINE
     Indication: Urea cycle disorder
     Dosage: 2 ML, QD
     Route: 050
  5. MOSAPRIDE [Concomitant]
     Active Substance: MOSAPRIDE
     Indication: Gastritis
     Dosage: 15 MG, QD
     Route: 065
  6. AMBROXOL [Concomitant]
     Active Substance: AMBROXOL
     Indication: Obstructive airways disorder
     Dosage: 30 MG, QD
     Route: 065
  7. ENEVO [Concomitant]
     Indication: Arginase deficiency
     Dosage: 25 ML, QID
     Route: 050
  8. BIFIDOBACTERIUM SPP. [Concomitant]
     Active Substance: BIFIDOBACTERIUM SPP.
     Indication: Product used for unknown indication
     Dosage: 2 G, QD
     Route: 050
  9. PRANLUKAST [Concomitant]
     Active Substance: PRANLUKAST
     Indication: Product used for unknown indication
     Dosage: 280 MG, QD
     Route: 050
  10. SODIUM CHLORIDE [Concomitant]
     Active Substance: SODIUM CHLORIDE
     Indication: Product used for unknown indication
     Dosage: 1.8 G, QD
     Route: 050
  11. SODIUM PICOSULFATE MONOHYDRATE [Concomitant]
     Active Substance: SODIUM PICOSULFATE MONOHYDRATE
     Indication: Product used for unknown indication
     Dosage: 2.5 MG, QD
     Route: 050
  12. VESICARE [Concomitant]
     Active Substance: SOLIFENACIN SUCCINATE
     Indication: Product used for unknown indication
     Dosage: 2.5 MG, QD
     Route: 050
  13. PRANLUKAST [Concomitant]
     Active Substance: PRANLUKAST
     Indication: Product used for unknown indication
     Dosage: 280 MG, QD
     Route: 050
  14. THEO-DUR [Concomitant]
     Active Substance: THEOPHYLLINE ANHYDROUS
     Indication: Product used for unknown indication
     Dosage: 200 MG, QD
     Route: 050
  15. TULOBUTEROL [Concomitant]
     Active Substance: TULOBUTEROL
     Indication: Product used for unknown indication
     Dosage: 2 MG, QD
     Route: 062

REACTIONS (3)
  - Pneumonia [Fatal]
  - Sepsis [Fatal]
  - Circulatory collapse [Fatal]

NARRATIVE: CASE EVENT DATE: 20210101
